FAERS Safety Report 9359023 (Version 1)
Quarter: 2013Q2

REPORT INFORMATION
  Report Type: Spontaneous
  Country: SK (occurrence: SK)
  Receive Date: 20130620
  Receipt Date: 20130620
  Transmission Date: 20140414
  Serious: Yes (Other)
  Sender: FDA-Public Use
  Company Number: SK-BAXTER-2013BAX022660

PATIENT
  Sex: Male

DRUGS (1)
  1. KIOVIG 100 MG/ML INF?ZNY INTRAVEN?ZNY ROZTOK [Suspect]
     Indication: CHRONIC LYMPHOCYTIC LEUKAEMIA
     Route: 042
     Dates: start: 20130509, end: 20130509

REACTIONS (5)
  - Chills [Recovered/Resolved]
  - Pyrexia [Recovered/Resolved]
  - Vomiting [Recovered/Resolved]
  - Micturition urgency [Recovered/Resolved]
  - Sensation of pressure [Recovered/Resolved]
